FAERS Safety Report 22119058 (Version 1)
Quarter: 2023Q1

REPORT INFORMATION
  Report Type: Spontaneous
  Country: GB (occurrence: GB)
  Receive Date: 20230321
  Receipt Date: 20230321
  Transmission Date: 20230418
  Serious: Yes (Disabling, Other)
  Sender: FDA-Public Use
  Company Number: None

PATIENT
  Age: 74 Year
  Sex: Female
  Weight: 60 kg

DRUGS (2)
  1. ALENDRONATE SODIUM [Suspect]
     Active Substance: ALENDRONATE SODIUM
     Indication: Osteoporosis
     Dosage: 70 MILLIGRAM, QW
     Dates: start: 20220925
  2. CHOLECALCIFEROL [Concomitant]
     Active Substance: CHOLECALCIFEROL
     Indication: Osteoporosis
     Dosage: UNK

REACTIONS (5)
  - Muscle spasms [Recovering/Resolving]
  - Malaise [Recovering/Resolving]
  - Muscular weakness [Recovering/Resolving]
  - Pruritus [Unknown]
  - Aura [Recovered/Resolved]

NARRATIVE: CASE EVENT DATE: 20220927
